FAERS Safety Report 15729394 (Version 1)
Quarter: 2018Q4

REPORT INFORMATION
  Report Type: Spontaneous
  Country: NZ (occurrence: NZ)
  Receive Date: 20181217
  Receipt Date: 20181217
  Transmission Date: 20190205
  Serious: Yes (Hospitalization, Other)
  Sender: FDA-Public Use
  Company Number: NZ-GLAXOSMITHKLINE-NZ2018GSK225193

PATIENT
  Age: 63 Year
  Sex: Female

DRUGS (1)
  1. NUCALA [Suspect]
     Active Substance: MEPOLIZUMAB
     Indication: PRODUCT USED FOR UNKNOWN INDICATION
     Dosage: UNK

REACTIONS (6)
  - Exercise tolerance decreased [Unknown]
  - Dyspnoea [Unknown]
  - Pleuritic pain [Unknown]
  - Pneumonia [Unknown]
  - Sputum discoloured [Unknown]
  - Chills [Unknown]

NARRATIVE: CASE EVENT DATE: 201809
